FAERS Safety Report 19621062 (Version 1)
Quarter: 2021Q3

REPORT INFORMATION
  Report Type: Spontaneous
  Country: BR (occurrence: BR)
  Receive Date: 20210728
  Receipt Date: 20210728
  Transmission Date: 20211014
  Serious: Yes (Hospitalization)
  Sender: FDA-Public Use
  Company Number: BR-ASTELLAS-2021US027775

PATIENT
  Age: 85 Year
  Sex: Male

DRUGS (1)
  1. MYRBETRIQ [Suspect]
     Active Substance: MIRABEGRON
     Indication: URINARY INCONTINENCE
     Route: 065

REACTIONS (5)
  - Speech disorder [Unknown]
  - Urinary tract infection [Not Recovered/Not Resolved]
  - Blood potassium decreased [Unknown]
  - Confusional state [Unknown]
  - Blood urea decreased [Unknown]
